FAERS Safety Report 7968800-9 (Version None)
Quarter: 2011Q4

REPORT INFORMATION
  Report Type: 
  Country: None (occurrence: None)
  Receive Date: 20111209
  Receipt Date: 20111201
  Transmission Date: 20120403
  Serious: Yes (Other)
  Sender: FDA-Public Use
  Company Number: GB-B.I. PHARMACEUTICALS,INC./RIDGEFIELD-2011-UK-01326UK

PATIENT
  Sex: Male

DRUGS (4)
  1. ORAMORPH SR [Suspect]
  2. MORPHINE [Concomitant]
  3. CATAPRES [Suspect]
     Route: 008
     Dates: start: 19970301, end: 20000301
  4. CATAPRES [Suspect]
     Dosage: 600 MCG
     Dates: start: 20010301

REACTIONS (5)
  - EXTRADURAL ABSCESS [None]
  - WRONG TECHNIQUE IN DRUG USAGE PROCESS [None]
  - THERAPEUTIC RESPONSE DECREASED [None]
  - INJECTION SITE INFLAMMATION [None]
  - WOUND INFECTION STAPHYLOCOCCAL [None]
